FAERS Safety Report 19167308 (Version 1)
Quarter: 2021Q2

REPORT INFORMATION
  Report Type: Spontaneous
  Country: NL (occurrence: NL)
  Receive Date: 20210422
  Receipt Date: 20210422
  Transmission Date: 20210717
  Serious: Yes (Death, Hospitalization)
  Sender: FDA-Public Use
  Company Number: NL-TEVA-2021-NL-1902266

PATIENT
  Age: 18 Month
  Sex: Female

DRUGS (2)
  1. CHLOROQUINE. [Suspect]
     Active Substance: CHLOROQUINE
     Indication: ACUTE RESPIRATORY DISTRESS SYNDROME
     Route: 065
  2. PREDNISOLONE. [Suspect]
     Active Substance: PREDNISOLONE
     Indication: ACUTE RESPIRATORY DISTRESS SYNDROME
     Route: 065

REACTIONS (1)
  - Drug ineffective [Fatal]
